FAERS Safety Report 14714450 (Version 9)
Quarter: 2022Q1

REPORT INFORMATION
  Report Type: Spontaneous
  Country: US (occurrence: US)
  Receive Date: 20180404
  Receipt Date: 20220106
  Transmission Date: 20220423
  Serious: Yes (Other)
  Sender: FDA-Public Use
  Company Number: US-GLAXOSMITHKLINE-US2018GSK057198

PATIENT
  Age: 50 Year
  Sex: Male
  Weight: 124.72 kg

DRUGS (56)
  1. PREVACID 24 HR [Suspect]
     Active Substance: LANSOPRAZOLE
     Indication: Gastrooesophageal reflux disease
     Dosage: 15 MG, QD
     Route: 048
  2. PREVACID 24 HR [Suspect]
     Active Substance: LANSOPRAZOLE
     Dosage: UNK
     Route: 048
     Dates: start: 2009, end: 2017
  3. PREVACID 24 HR [Suspect]
     Active Substance: LANSOPRAZOLE
     Dosage: 15 MG, QD
  4. PREVACID [Suspect]
     Active Substance: LANSOPRAZOLE
     Indication: Gastrooesophageal reflux disease
     Dosage: 40 MG, QD
     Route: 065
  5. PREVACID [Suspect]
     Active Substance: LANSOPRAZOLE
     Dosage: 30 MG, QD
     Route: 065
  6. PREVACID [Suspect]
     Active Substance: LANSOPRAZOLE
     Dosage: 30 MG, QD
     Route: 065
     Dates: start: 2002, end: 2017
  7. PREVACID [Suspect]
     Active Substance: LANSOPRAZOLE
     Dosage: 40 MG, QD
     Dates: start: 20020101
  8. PREVACID [Suspect]
     Active Substance: LANSOPRAZOLE
     Dosage: 30 MG, QD
  9. NEXIUM 24HR [Suspect]
     Active Substance: ESOMEPRAZOLE MAGNESIUM
     Indication: Gastrooesophageal reflux disease
     Dosage: 40 MG, QD
     Route: 065
     Dates: start: 2002, end: 2017
  10. NEXIUM 24HR [Suspect]
     Active Substance: ESOMEPRAZOLE MAGNESIUM
     Dosage: 20 MG, BID
     Dates: start: 2014, end: 2017
  11. NEXIUM 24HR [Suspect]
     Active Substance: ESOMEPRAZOLE MAGNESIUM
     Indication: Gastrooesophageal reflux disease
     Dosage: 20 MG, BID
     Route: 065
     Dates: start: 2014, end: 2017
  12. ESOMEPRAZOLE MAGNESIUM [Suspect]
     Active Substance: ESOMEPRAZOLE MAGNESIUM
     Indication: Product used for unknown indication
     Dosage: UNK
     Route: 065
  13. ESOMEPRAZOLE MAGNESIUM [Suspect]
     Active Substance: ESOMEPRAZOLE MAGNESIUM
     Dosage: UNK
  14. OMEPRAZOLE SODIUM [Suspect]
     Active Substance: OMEPRAZOLE SODIUM
     Indication: Gastrooesophageal reflux disease
     Dosage: 40 MG, QD
     Route: 048
     Dates: start: 201610
  15. OMEPRAZOLE SODIUM [Suspect]
     Active Substance: OMEPRAZOLE SODIUM
     Dosage: 40 MG, QD
     Dates: start: 20160114
  16. OMEPRAZOLE SODIUM [Suspect]
     Active Substance: OMEPRAZOLE SODIUM
     Dosage: 40 MG, QD
     Dates: start: 2003
  17. PANTOPRAZOLE SODIUM [Suspect]
     Active Substance: PANTOPRAZOLE SODIUM
     Indication: Product used for unknown indication
     Dosage: UNK
     Route: 065
  18. PANTOPRAZOLE SODIUM [Suspect]
     Active Substance: PANTOPRAZOLE SODIUM
     Dosage: UNK
  19. OMEPRAZOLE [Suspect]
     Active Substance: OMEPRAZOLE
     Indication: Gastrooesophageal reflux disease
     Dosage: 40 MG, QD
     Route: 065
  20. OMEPRAZOLE [Suspect]
     Active Substance: OMEPRAZOLE
     Dosage: 20 MG, QD
     Route: 065
     Dates: start: 2010, end: 201610
  21. OMEPRAZOLE [Suspect]
     Active Substance: OMEPRAZOLE
     Dosage: 40 MG, QD
  22. OMEPRAZOLE [Suspect]
     Active Substance: OMEPRAZOLE
     Dosage: 40 MG, QD
     Dates: start: 20020101, end: 20171231
  23. PRILOSEC [Suspect]
     Active Substance: OMEPRAZOLE MAGNESIUM
     Indication: Gastrooesophageal reflux disease
     Dosage: 40 MG, QD
     Route: 065
     Dates: start: 2002, end: 2017
  24. PRILOSEC [Suspect]
     Active Substance: OMEPRAZOLE MAGNESIUM
     Indication: Gastrooesophageal reflux disease
     Dosage: 40 MG, QD
     Route: 065
     Dates: start: 2003
  25. PROTONIX [Suspect]
     Active Substance: PANTOPRAZOLE SODIUM
     Indication: Cardiac failure congestive
     Dosage: 40 MG, QD
     Route: 065
     Dates: start: 2015
  26. NEXIUM [Suspect]
     Active Substance: ESOMEPRAZOLE MAGNESIUM
     Indication: Gastrooesophageal reflux disease
     Dosage: 40 MG, QD
     Dates: start: 2002, end: 2017
  27. NEXIUM [Suspect]
     Active Substance: ESOMEPRAZOLE MAGNESIUM
     Dosage: 30 MG, QD
     Dates: start: 20020101, end: 20171231
  28. PRILOSEC [Suspect]
     Active Substance: OMEPRAZOLE MAGNESIUM
     Indication: Gastrooesophageal reflux disease
     Dosage: 40 MG, QD
     Dates: start: 2002, end: 2017
  29. PRILOSEC [Suspect]
     Active Substance: OMEPRAZOLE MAGNESIUM
     Dosage: 40 MG, QD
     Dates: start: 20020101, end: 20171231
  30. PRILOSEC [Suspect]
     Active Substance: OMEPRAZOLE MAGNESIUM
     Indication: Gastrooesophageal reflux disease
     Dosage: 40 MG, QD
     Dates: start: 2003
  31. PROTONIX [Suspect]
     Active Substance: PANTOPRAZOLE SODIUM
     Indication: Cardiac failure congestive
     Dosage: 40 MG, QD
     Dates: start: 2015
  32. PROTONIX [Suspect]
     Active Substance: PANTOPRAZOLE SODIUM
     Indication: Gastrooesophageal reflux disease
     Dosage: 40 MG, QD
     Dates: start: 20020101, end: 20171231
  33. OMEPRAZOLE AND SODIUM BICARBONATE [Suspect]
     Active Substance: OMEPRAZOLE\SODIUM BICARBONATE
     Indication: Gastrooesophageal reflux disease
     Dosage: 20 MG, QD
     Dates: start: 2010, end: 201610
  34. FAMOTIDINE [Concomitant]
     Active Substance: FAMOTIDINE
     Indication: Product used for unknown indication
     Dosage: UNK
     Dates: start: 2016, end: 2017
  35. FAMOTIDINE [Concomitant]
     Active Substance: FAMOTIDINE
     Dosage: UNK
     Dates: start: 2017
  36. PEPCID COMPLETE [Concomitant]
     Active Substance: CALCIUM CARBONATE\FAMOTIDINE\MAGNESIUM HYDROXIDE
     Indication: Product used for unknown indication
     Dosage: UNK
     Dates: start: 2002
  37. TUMS [Concomitant]
     Active Substance: CALCIUM CARBONATE
     Indication: Product used for unknown indication
     Dosage: 500 MG
     Dates: start: 2002
  38. ROLAIDS EXTRA STRENGTH SOFTCHEWS [Concomitant]
     Indication: Product used for unknown indication
     Dosage: UNK
     Dates: start: 2002
  39. PEPTO-BISMOL [Concomitant]
     Active Substance: BISMUTH SUBSALICYLATE
     Indication: Product used for unknown indication
     Dosage: UNK
     Dates: start: 2002
  40. ATORVASTATIN [Concomitant]
     Active Substance: ATORVASTATIN
     Indication: Blood cholesterol increased
     Dosage: UNK
     Dates: start: 201703
  41. BENZONATATE [Concomitant]
     Active Substance: BENZONATATE
     Indication: Cough
     Dosage: UNK
     Dates: start: 201701
  42. CARVEDILOL [Concomitant]
     Active Substance: CARVEDILOL
     Indication: Cardiac failure congestive
     Dosage: UNK
  43. CARVEDILOL [Concomitant]
     Active Substance: CARVEDILOL
     Indication: Cardiomyopathy
  44. DIGOXIN [Concomitant]
     Active Substance: DIGOXIN
     Indication: Cardiac failure congestive
     Dosage: UNK
     Dates: start: 201703
  45. FERROUS SULFATE [Concomitant]
     Active Substance: FERROUS SULFATE
     Indication: Blood iron
     Dosage: UNK
     Dates: start: 201704
  46. FUROSEMIDE [Concomitant]
     Active Substance: FUROSEMIDE
     Indication: Oedema
     Dosage: UNK
     Dates: start: 201701
  47. FUROSEMIDE [Concomitant]
     Active Substance: FUROSEMIDE
     Indication: Diuretic therapy
  48. ACETAMINOPHEN\HYDROCODONE [Concomitant]
     Active Substance: ACETAMINOPHEN\HYDROCODONE
     Indication: Pain
     Dosage: UNK
     Dates: start: 201710
  49. JARDIANCE [Concomitant]
     Active Substance: EMPAGLIFLOZIN
     Indication: Diabetes mellitus
     Dosage: UNK
     Dates: start: 201703
  50. METFORMIN [Concomitant]
     Active Substance: METFORMIN HYDROCHLORIDE
     Indication: Diabetes mellitus
     Dosage: UNK
     Dates: start: 201705, end: 201901
  51. SPIRONOLACTONE [Concomitant]
     Active Substance: SPIRONOLACTONE
     Indication: Blood pressure increased
     Dosage: UNK
     Dates: start: 201701, end: 201712
  52. SPIRONOLACTONE [Concomitant]
     Active Substance: SPIRONOLACTONE
     Indication: Cardiac failure congestive
     Dosage: UNK
     Dates: start: 2016, end: 201901
  53. RANITIDINE [Concomitant]
     Active Substance: RANITIDINE
     Indication: Product used for unknown indication
     Dosage: UNK
     Dates: start: 2002
  54. ALKA-SELTZER [Concomitant]
     Active Substance: ANHYDROUS CITRIC ACID\ASPIRIN\SODIUM BICARBONATE
     Indication: Product used for unknown indication
     Dosage: UNK
     Dates: start: 2002
  55. MILK OF MAGNESIA [Concomitant]
     Active Substance: MAGNESIUM HYDROXIDE
     Indication: Product used for unknown indication
     Dosage: 5 MG
     Dates: start: 2002
  56. GAVISCON ACID BREAKTHROUGH FORMULA [Concomitant]
     Indication: Product used for unknown indication
     Dosage: UNK
     Dates: start: 2002

REACTIONS (17)
  - Pyelonephritis [Unknown]
  - Dysuria [Unknown]
  - Acute kidney injury [Not Recovered/Not Resolved]
  - Chronic kidney disease [Not Recovered/Not Resolved]
  - Renal transplant [Unknown]
  - Nephrolithiasis [Not Recovered/Not Resolved]
  - Renal failure [Unknown]
  - Hypertensive nephropathy [Unknown]
  - Renal injury [Not Recovered/Not Resolved]
  - Nephropathy [Unknown]
  - Renal glycosuria [Unknown]
  - Ureterolithiasis [Unknown]
  - Polyuria [Not Recovered/Not Resolved]
  - Acute kidney injury [Not Recovered/Not Resolved]
  - Chronic kidney disease [Not Recovered/Not Resolved]
  - Renal failure [Not Recovered/Not Resolved]
  - Gastrooesophageal reflux disease [Not Recovered/Not Resolved]

NARRATIVE: CASE EVENT DATE: 20151201
